FAERS Safety Report 7680412-3 (Version None)
Quarter: 2011Q3

REPORT INFORMATION
  Report Type: 
  Country: None (occurrence: None)
  Receive Date: 20110812
  Receipt Date: 20110810
  Transmission Date: 20111222
  Serious: Yes (Other)
  Sender: FDA-Public Use
  Company Number: ZA-SANOFI-AVENTIS-2011SA050026

PATIENT
  Age: 29 Year
  Sex: Female

DRUGS (4)
  1. LOVAZA [Concomitant]
  2. APIDRA [Suspect]
     Dates: start: 20110729
  3. LANTUS [Suspect]
     Dates: start: 20110721
  4. FLUOXETINE [Concomitant]

REACTIONS (1)
  - BLINDNESS UNILATERAL [None]
